FAERS Safety Report 10431301 (Version 2)
Quarter: 2014Q3

REPORT INFORMATION
  Report Type: Spontaneous
  Country: DE (occurrence: JP)
  Receive Date: 20140904
  Receipt Date: 20140926
  Transmission Date: 20150326
  Serious: Yes (Hospitalization)
  Sender: FDA-Public Use
  Company Number: JP-FRI-1000070374

PATIENT
  Age: 87 Year
  Sex: Male
  Weight: 55 kg

DRUGS (13)
  1. ALDACTONE [Concomitant]
     Active Substance: SPIRONOLACTONE
  2. MEMANTINE [Suspect]
     Active Substance: MEMANTINE
     Dosage: 10 MG
     Route: 048
     Dates: start: 20130827, end: 20131021
  3. LANIRAPID [Concomitant]
     Active Substance: METILDIGOXIN
  4. DEPAKENE [Concomitant]
     Active Substance: VALPROIC ACID
     Dates: start: 20140318
  5. SIGMART [Concomitant]
     Active Substance: NICORANDIL
  6. ARICEPT [Concomitant]
     Active Substance: DONEPEZIL HYDROCHLORIDE
     Dates: start: 20090617
  7. BAYASPIRIN [Concomitant]
     Active Substance: ASPIRIN
  8. AMARYL [Concomitant]
     Active Substance: GLIMEPIRIDE
  9. LASIX [Concomitant]
     Active Substance: FUROSEMIDE
  10. MEMANTINE [Suspect]
     Active Substance: MEMANTINE
     Indication: DEMENTIA ALZHEIMER^S TYPE
     Dosage: 5 MG
     Route: 048
     Dates: start: 20121204, end: 20130826
  11. MEMANTINE [Suspect]
     Active Substance: MEMANTINE
     Indication: DEMENTIA ALZHEIMER^S TYPE
     Dosage: 20 MG
     Route: 048
     Dates: start: 20131022, end: 20140715
  12. NESINA [Concomitant]
     Active Substance: ALOGLIPTIN BENZOATE
  13. MAGLAX [Concomitant]
     Active Substance: MAGNESIUM OXIDE

REACTIONS (4)
  - Loss of consciousness [Recovered/Resolved]
  - Epilepsy [Recovered/Resolved]
  - Fall [Unknown]
  - Ankle fracture [Unknown]

NARRATIVE: CASE EVENT DATE: 201402
